FAERS Safety Report 10853710 (Version 1)
Quarter: 2015Q1

REPORT INFORMATION
  Report Type: Spontaneous
  Country: FR (occurrence: FR)
  Receive Date: 20150223
  Receipt Date: 20150223
  Transmission Date: 20150721
  Serious: Yes (Hospitalization, Other)
  Sender: FDA-Public Use
  Company Number: FR-AUROBINDO-AUR-APL-2015-01453

PATIENT
  Age: 26 Year
  Sex: Male

DRUGS (5)
  1. LEPTICUR [Suspect]
     Active Substance: TROPATEPINE HYDROCHLORIDE
     Indication: PRODUCT USED FOR UNKNOWN INDICATION
     Dosage: 10 MG, DAILY
     Route: 048
     Dates: start: 20140702
  2. VALPROIC [Suspect]
     Active Substance: VALPROIC ACID
     Indication: PRODUCT USED FOR UNKNOWN INDICATION
     Dosage: 1.5 G, DAILY
     Route: 048
     Dates: start: 20140702
  3. LOXAPAC                            /00401801/ [Suspect]
     Active Substance: LOXAPINE SUCCINATE
     Indication: PRODUCT USED FOR UNKNOWN INDICATION
     Dosage: 175 MG, DAILY
     Route: 048
     Dates: start: 20140702
  4. ATARAX [Suspect]
     Active Substance: HYDROXYZINE\HYDROXYZINE HYDROCHLORIDE
     Indication: PRODUCT USED FOR UNKNOWN INDICATION
     Dosage: 300 MG, DAILY
     Route: 048
     Dates: start: 20140702
  5. HALDOL [Suspect]
     Active Substance: HALOPERIDOL
     Indication: PRODUCT USED FOR UNKNOWN INDICATION
     Dosage: 275 MG, DAILY
     Route: 048
     Dates: start: 20140702

REACTIONS (5)
  - Coagulation factor X level decreased [Recovered/Resolved]
  - Prothrombin time shortened [Recovered/Resolved]
  - Blood fibrinogen decreased [Recovered/Resolved]
  - Haemostasis [Recovered/Resolved]
  - Coagulation factor V level decreased [Recovered/Resolved]

NARRATIVE: CASE EVENT DATE: 20141121
